FAERS Safety Report 11656885 (Version 1)
Quarter: 2015Q4

REPORT INFORMATION
  Report Type: Other
  Country: JP (occurrence: JP)
  Receive Date: 20151023
  Receipt Date: 20151023
  Transmission Date: 20160304
  Serious: Yes (Other)
  Sender: FDA-Public Use
  Company Number: JP-GUERBET LLC-1043332

PATIENT
  Age: 35 Year
  Sex: Female

DRUGS (1)
  1. LIPIODOL [Suspect]
     Active Substance: ETHIODIZED OIL
     Indication: HYSTEROSALPINGOGRAM

REACTIONS (6)
  - Maternal exposure before pregnancy [Recovered/Resolved]
  - Foreign body reaction [Recovered/Resolved]
  - Abdominal operation [Recovered/Resolved]
  - Pelvic fluid collection [Recovered/Resolved]
  - Placenta praevia [Recovered/Resolved]
  - Caesarean section [Recovered/Resolved]
